FAERS Safety Report 23831166 (Version 1)
Quarter: 2024Q2

REPORT INFORMATION
  Report Type: Spontaneous
  Country: DE (occurrence: DE)
  Receive Date: 20240508
  Receipt Date: 20240508
  Transmission Date: 20240715
  Serious: Yes (Other)
  Sender: FDA-Public Use
  Company Number: None

PATIENT
  Age: 59 Year
  Sex: Male

DRUGS (1)
  1. CIBINQO [Suspect]
     Active Substance: ABROCITINIB
     Indication: Dermatitis atopic
     Dosage: 200 MG, 1X/DAY
     Route: 048
     Dates: start: 20240405, end: 20240412

REACTIONS (3)
  - Superinfection [Recovered/Resolved]
  - Drug eruption [Recovered/Resolved]
  - Leukocytosis [Unknown]

NARRATIVE: CASE EVENT DATE: 20240101
